FAERS Safety Report 5165860-8 (Version None)
Quarter: 2006Q4

REPORT INFORMATION
  Report Type: 
  Country: None (occurrence: None)
  Receive Date: 20061128
  Receipt Date: 20061114
  Transmission Date: 20070319
  Serious: Yes (Other)
  Sender: FDA-Public Use
  Company Number: 230023M06DEU

PATIENT
  Age: 45 Year
  Sex: Male

DRUGS (2)
  1. REBIF [Suspect]
  2. CORTISONE ACETATE [Concomitant]

REACTIONS (1)
  - OSTEONECROSIS [None]
